FAERS Safety Report 6400467-3 (Version None)
Quarter: 2009Q4

REPORT INFORMATION
  Report Type: 
  Country: None (occurrence: None)
  Receive Date: 20091014
  Receipt Date: 20091013
  Transmission Date: 20100525
  Serious: Yes (Life-Threatening)
  Sender: FDA-Public Use
  Company Number: GB-WYE-G04614109

PATIENT
  Sex: Male

DRUGS (3)
  1. GEMTUZUMAB OZOGAMICIN [Suspect]
     Indication: ACUTE MYELOID LEUKAEMIA
     Dosage: UNKNOWN
     Dates: start: 20090918
  2. ARA-C [Suspect]
     Dosage: UNKNOWN
     Dates: start: 20090918
  3. DAUNORUBICIN HCL [Suspect]
     Dosage: UNKNOWN
     Dates: start: 20090918

REACTIONS (2)
  - INTESTINAL OBSTRUCTION [None]
  - MEGACOLON [None]
